FAERS Safety Report 7403585-6 (Version None)
Quarter: 2011Q2

REPORT INFORMATION
  Report Type: 
  Country: None (occurrence: None)
  Receive Date: 20110408
  Receipt Date: 20110406
  Transmission Date: 20111010
  Serious: Yes (Death, Hospitalization)
  Sender: FDA-Public Use
  Company Number: BR-SHIRE-SPV1-2011-00526

PATIENT
  Age: 17 Year
  Sex: Male
  Weight: 15 kg

DRUGS (1)
  1. ELAPRASE [Suspect]
     Indication: MUCOPOLYSACCHARIDOSIS II
     Dosage: UNK, UNKNOWN
     Route: 041
     Dates: end: 20110222

REACTIONS (4)
  - DEATH [None]
  - MALNUTRITION [None]
  - DISEASE PROGRESSION [None]
  - DYSPHAGIA [None]
